FAERS Safety Report 5699152-5 (Version None)
Quarter: 2008Q2

REPORT INFORMATION
  Report Type: 
  Country: None (occurrence: None)
  Receive Date: 20080404
  Receipt Date: 20080404
  Transmission Date: 20081010
  Serious: Yes (Other)
  Sender: FDA-Public Use
  Company Number: None

PATIENT
  Age: 40 Year
  Sex: Female
  Weight: 88.9 kg

DRUGS (2)
  1. ULTANE [Suspect]
     Indication: INDUCTION OF ANAESTHESIA
     Dosage: INHAL
     Route: 055
     Dates: start: 20080331, end: 20080403
  2. ULTANE [Suspect]
     Indication: INDUCTION OF ANAESTHESIA
     Dosage: INHAL
     Route: 055
     Dates: start: 20080331, end: 20080403

REACTIONS (1)
  - UNWANTED AWARENESS DURING ANAESTHESIA [None]
